FAERS Safety Report 8283836 (Version 5)
Quarter: 2013Q3

REPORT INFORMATION
  Report Type: Report from Study
  Country: US (occurrence: US)
  Receive Date: 20111212
  Receipt Date: 20130827
  Transmission Date: 20140515
  Serious: Yes (Hospitalization)
  Sender: FDA-Public Use
  Company Number: US-JNJFOC-20111111406

PATIENT
  Age: 57 Year
  Sex: Female
  Weight: 81.65 kg

DRUGS (3)
  1. REMICADE [Suspect]
     Indication: PSORIASIS
     Route: 042
     Dates: start: 200712
  2. METHOTREXATE [Suspect]
     Indication: PRODUCT USED FOR UNKNOWN INDICATION
  3. PREMEDICATION [Concomitant]

REACTIONS (3)
  - Pneumonia [Recovered/Resolved]
  - Pleurisy [Unknown]
  - Pleural effusion [Recovered/Resolved]
